FAERS Safety Report 23657563 (Version 1)
Quarter: 2024Q1

REPORT INFORMATION
  Report Type: Other
  Country: US (occurrence: US)
  Receive Date: 20240321
  Receipt Date: 20240321
  Transmission Date: 20240410
  Serious: Yes (Other)
  Sender: FDA-Public Use
  Company Number: US-Marksans Pharma Limited-2154576

PATIENT
  Age: 55 Year

DRUGS (1)
  1. GABAPENTIN [Suspect]
     Active Substance: GABAPENTIN
     Route: 065

REACTIONS (6)
  - Unresponsive to stimuli [Recovered/Resolved]
  - Impaired driving ability [Unknown]
  - Tremor [Unknown]
  - Dizziness [Unknown]
  - Abnormal behaviour [Unknown]
  - Balance disorder [Unknown]
